FAERS Safety Report 8966161 (Version 1)
Quarter: 2012Q4

REPORT INFORMATION
  Report Type: Spontaneous
  Country: US (occurrence: None)
  Receive Date: 20121204
  Receipt Date: 20121204
  Transmission Date: 20130627
  Serious: Yes (Hospitalization)
  Sender: FDA-Public Use
  Company Number: FK201203576

PATIENT
  Age: 78 Year
  Weight: 68.95 kg

DRUGS (1)
  1. DEXAMETHASONE [Suspect]
     Indication: MULTIPLE MYELOMA
     Dosage: 40 mg,  qd x 4 Q2w cycle,  Oral
     Route: 048
     Dates: start: 20110523, end: 20120109

REACTIONS (2)
  - Clavicle fracture [None]
  - Pathological fracture [None]
